FAERS Safety Report 18789061 (Version 1)
Quarter: 2021Q1

REPORT INFORMATION
  Report Type: Spontaneous
  Country: GB (occurrence: GB)
  Receive Date: 20210126
  Receipt Date: 20210126
  Transmission Date: 20210419
  Serious: Yes (Other)
  Sender: FDA-Public Use
  Company Number: GB-MYLANLABS-2021M1003961

PATIENT
  Age: 93 Year
  Sex: Female
  Weight: 58 kg

DRUGS (18)
  1. FLUCLOXACILLIN [Concomitant]
     Active Substance: FLUCLOXACILLIN
     Dosage: 1 DOSAGE FORM, QID
     Dates: start: 20201203, end: 20201210
  2. OCTENISAN                          /07129001/ [Concomitant]
     Active Substance: ALLANTOIN\OCTENIDINE
     Dosage: UNK UNK, PRN (USE AS DIRECTED)
     Dates: start: 20210104
  3. ZAPAIN [Concomitant]
     Active Substance: ACETAMINOPHEN\CODEINE PHOSPHATE
     Dosage: UNK UNK, QID (TAKE 1 OR 2 4 TIMES/DAY)
     Dates: start: 20200414
  4. E45 [Concomitant]
     Active Substance: LANOLIN\LIGHT MINERAL OIL\PARAFFIN
     Dosage: APPLY AS DIRECTED
     Dates: start: 20190429
  5. MOVELAT                            /00479601/ [Concomitant]
     Dosage: APPLY 4 TIMES/DAY
     Dates: start: 20190902
  6. CLARITHROMYCIN. [Suspect]
     Active Substance: CLARITHROMYCIN
     Indication: PRODUCT USED FOR UNKNOWN INDICATION
     Dosage: 500 MILLIGRAM
     Dates: start: 20210118
  7. CLOTRIMAZOLE. [Concomitant]
     Active Substance: CLOTRIMAZOLE
     Dosage: APPLY 2?3 TIMES/DAY
     Dates: start: 20201102, end: 20201109
  8. DERMOL                             /01330701/ [Concomitant]
     Dosage: UNK UNK, QD (USE ONCE DAILY ASD)
     Dates: start: 20190528
  9. LANSOPRAZOLE. [Concomitant]
     Active Substance: LANSOPRAZOLE
     Dosage: 1 DOSAGE FORM, BID
     Dates: start: 20190429
  10. LYCLEAR [Concomitant]
     Active Substance: PERMETHRIN
     Dosage: APPLY TO WHOLE BODY AND LEAVE FOR 12 HOURS BEFO...
     Dates: start: 20201231, end: 20210101
  11. HYPROMELLOSE [Concomitant]
     Active Substance: HYPROMELLOSES
     Dosage: 1 DROP, TID
     Dates: start: 20191009
  12. PREGABALIN. [Concomitant]
     Active Substance: PREGABALIN
     Dosage: 1 DOSAGE FORM, BID
     Dates: start: 20200330
  13. BETAMETHASONE VALERATE W/CLIOQUINOL [Concomitant]
     Dosage: 1 DOSAGE FORM, BID (SPARINGLY)
     Dates: start: 20210114
  14. CLOPIDOGREL [Concomitant]
     Active Substance: CLOPIDOGREL BISULFATE
     Dosage: 1 DOSAGE FORM, QD
     Dates: start: 20190528
  15. BUTRANS [Concomitant]
     Active Substance: BUPRENORPHINE
     Dosage: 1 DOSAGE FORM, QW (ON A WEDNESDAY)
     Dates: start: 20200330
  16. HYDROCORTISONE. [Concomitant]
     Active Substance: HYDROCORTISONE
     Dosage: 1 DOSAGE FORM, BID (APPLY TWICE DAILY FOR 7 DAYS)
     Dates: start: 20210111, end: 20210118
  17. PHENOXYMETHYLPENICILLIN [Concomitant]
     Active Substance: PENICILLIN V
     Dosage: 2 DOSAGE FORM, QID
     Dates: start: 20210118
  18. CLARITHROMYCIN. [Concomitant]
     Active Substance: CLARITHROMYCIN
     Dosage: 1 DOSAGE FORM, BID
     Dates: start: 20210115

REACTIONS (1)
  - Oral discomfort [Recovering/Resolving]

NARRATIVE: CASE EVENT DATE: 20210118
